FAERS Safety Report 5104019-7 (Version None)
Quarter: 2006Q3

REPORT INFORMATION
  Report Type: 
  Country: None (occurrence: None)
  Receive Date: 20060908
  Receipt Date: 20060829
  Transmission Date: 20061208
  Serious: Yes (Other)
  Sender: FDA-Public Use
  Company Number: 2006105099

PATIENT
  Sex: Female

DRUGS (3)
  1. NORVASC [Suspect]
  2. LABETALOL HCL [Suspect]
  3. CLONIDINE [Suspect]

REACTIONS (2)
  - DIABETES MELLITUS [None]
  - DIALYSIS [None]
